FAERS Safety Report 5270182-0 (Version None)
Quarter: 2007Q1

REPORT INFORMATION
  Report Type: 
  Country: None (occurrence: None)
  Receive Date: 20070314
  Receipt Date: 20070301
  Transmission Date: 20070707
  Serious: Yes (Life-Threatening, Hospitalization)
  Sender: FDA-Public Use
  Company Number: 2007SP003389

PATIENT
  Age: 76 Year
  Sex: Male
  Weight: 65 kg

DRUGS (3)
  1. DESLORATADINE [Suspect]
     Indication: PHOTOSENSITIVITY REACTION
     Dosage: 5 MG; QD; PO
     Route: 048
     Dates: start: 20061221, end: 20070104
  2. ELOCON [Concomitant]
  3. HEDROCHENON [Concomitant]

REACTIONS (2)
  - PHOTOSENSITIVITY REACTION [None]
  - TACHYCARDIA [None]
